FAERS Safety Report 25274474 (Version 2)
Quarter: 2025Q2

REPORT INFORMATION
  Report Type: Report from Study
  Country: BR (occurrence: BR)
  Receive Date: 20250506
  Receipt Date: 20250508
  Transmission Date: 20250717
  Serious: Yes (Other)
  Sender: NOVARTIS
  Company Number: BR-002147023-NVSC2025BR041389

PATIENT
  Sex: Female

DRUGS (1)
  1. KISQALI [Suspect]
     Active Substance: RIBOCICLIB SUCCINATE
     Indication: Product used for unknown indication
     Route: 065
     Dates: start: 202406

REACTIONS (13)
  - Ophthalmoplegia [Unknown]
  - Metastasis [Not Recovered/Not Resolved]
  - Drug ineffective [Unknown]
  - Asthenia [Not Recovered/Not Resolved]
  - Dyspnoea [Not Recovered/Not Resolved]
  - Malaise [Not Recovered/Not Resolved]
  - Vomiting [Unknown]
  - Fall [Not Recovered/Not Resolved]
  - Wound [Unknown]
  - Feeding disorder [Not Recovered/Not Resolved]
  - Upper limb fracture [Unknown]
  - Balance disorder [Unknown]
  - Shoulder fracture [Unknown]
